FAERS Safety Report 8588934 (Version 2)
Quarter: 2012Q4

REPORT INFORMATION
  Report Type: 
  Country: US (occurrence: US)
  Receive Date: 20120531
  Receipt Date: 20121116
  Transmission Date: 20130627
  Serious: Yes (Hospitalization)
  Sender: FDA-Public Use
  Company Number: US-PFIZER INC-2012129439

PATIENT
  Age: 71 Year
  Sex: Female
  Weight: 70 kg

DRUGS (8)
  1. NORVASC [Suspect]
     Indication: BLOOD PRESSURE HIGH
     Dosage: 10 mg, 1x/day
     Route: 048
     Dates: start: 1996
  2. LISINOPRIL [Concomitant]
     Indication: BLOOD PRESSURE HIGH
     Dosage: UNK
  3. JANUVIA [Concomitant]
     Indication: DIABETES
     Dosage: UNK
  4. LANTUS [Concomitant]
     Indication: DIABETES
     Dosage: UNK
  5. LOVASTATIN [Concomitant]
     Indication: HIGH CHOLESTEROL
     Dosage: UNK
  6. BABY ASPIRIN [Concomitant]
     Dosage: 81 mg, UNK
  7. LABETALOL [Concomitant]
     Dosage: 200 mg, UNK
  8. PLAVIX [Concomitant]
     Dosage: UNK

REACTIONS (4)
  - Pneumonia [Recovered/Resolved]
  - Panic attack [Not Recovered/Not Resolved]
  - Dyspnoea [Unknown]
  - Cystitis [Unknown]
